FAERS Safety Report 23825333 (Version 2)
Quarter: 2024Q2

REPORT INFORMATION
  Report Type: Report from Study
  Country: US (occurrence: US)
  Receive Date: 20240507
  Receipt Date: 20240514
  Transmission Date: 20240716
  Serious: Yes (Hospitalization)
  Sender: FDA-Public Use
  Company Number: US-BAYER-2024A040336

PATIENT
  Age: 82 Year
  Sex: Female
  Weight: 78.912 kg

DRUGS (24)
  1. ADEMPAS [Suspect]
     Active Substance: RIOCIGUAT
     Indication: Pulmonary arterial hypertension
     Dosage: UNK
     Dates: start: 20231106
  2. ADEMPAS [Suspect]
     Active Substance: RIOCIGUAT
     Indication: Pulmonary arterial hypertension
     Dosage: 2.5 MG, TID
     Route: 048
  3. ADEMPAS [Suspect]
     Active Substance: RIOCIGUAT
     Indication: Pulmonary arterial hypertension
     Dosage: 2.5 MG, TID
     Route: 048
  4. ADEMPAS [Suspect]
     Active Substance: RIOCIGUAT
     Indication: Pulmonary arterial hypertension
     Dosage: 2.5 MG, TID
     Route: 048
  5. NEBIVOLOL [Concomitant]
     Active Substance: NEBIVOLOL
  6. ASCORBIC ACID [Concomitant]
     Active Substance: ASCORBIC ACID
  7. CALCIUM CITRATE;VITAMIN D NOS [Concomitant]
  8. CLARITIN-D NOS [Concomitant]
     Active Substance: LORATADINE\PSEUDOEPHEDRINE SULFATE
  9. BREO ELLIPTA [Concomitant]
     Active Substance: FLUTICASONE FUROATE\VILANTEROL TRIFENATATE
  10. PAROXETINE [Concomitant]
     Active Substance: PAROXETINE
  11. ELIQUIS [Concomitant]
     Active Substance: APIXABAN
  12. VITAMIN D3 [Concomitant]
     Active Substance: CHOLECALCIFEROL
  13. BYSTOLIC [Concomitant]
     Active Substance: NEBIVOLOL HYDROCHLORIDE
  14. LASIX [Concomitant]
     Active Substance: FUROSEMIDE
  15. PANTOPRAZOLE SODIUM [Concomitant]
     Active Substance: PANTOPRAZOLE SODIUM
  16. TRAVATAN [Concomitant]
     Active Substance: TRAVOPROST
  17. LIPITOR [Concomitant]
     Active Substance: ATORVASTATIN CALCIUM
  18. MINERALS\VITAMINS [Concomitant]
     Active Substance: MINERALS\VITAMINS
  19. OXYGEN [Concomitant]
     Active Substance: OXYGEN
  20. ALPRAZOLAM [Concomitant]
     Active Substance: ALPRAZOLAM
  21. XOPENEX HFA [Concomitant]
     Active Substance: LEVALBUTEROL TARTRATE
  22. ASPIRIN [Concomitant]
     Active Substance: ASPIRIN
  23. ESTERCIN [Concomitant]
  24. OPSUMIT [Concomitant]
     Active Substance: MACITENTAN

REACTIONS (13)
  - Lung disorder [Not Recovered/Not Resolved]
  - Red blood cell count decreased [Not Recovered/Not Resolved]
  - Ageusia [Not Recovered/Not Resolved]
  - Dyspepsia [None]
  - Transfusion [None]
  - Gastrointestinal haemorrhage [None]
  - Anaemia [None]
  - Rectal haemorrhage [None]
  - Dyspnoea [None]
  - Haemoglobin decreased [None]
  - Asthenia [None]
  - Dizziness [None]
  - Oedema peripheral [None]

NARRATIVE: CASE EVENT DATE: 20240425
